FAERS Safety Report 7118898-5 (Version None)
Quarter: 2010Q4

REPORT INFORMATION
  Report Type: 
  Country: None (occurrence: None)
  Receive Date: 20101123
  Receipt Date: 20101109
  Transmission Date: 20110411
  Serious: Yes (Death)
  Sender: FDA-Public Use
  Company Number: NL-ROCHE-736257

PATIENT
  Sex: Male
  Weight: 70 kg

DRUGS (10)
  1. BEVACIZUMAB [Suspect]
     Indication: GLIOBLASTOMA
     Dosage: LAST DOSE PRIOR TO SAE: 14 OCT 2010
     Route: 065
     Dates: start: 20100916
  2. LOMUSTINE [Suspect]
     Indication: GLIOBLASTOMA
     Dosage: LAST DOSE PRIOR TO SAE: 16 SEPT 2010
     Route: 065
     Dates: start: 20100916
  3. LEVETIRACETAM [Concomitant]
     Dosage: DATE OF LAST DOSE: 19 OCTOBER 2010
     Route: 048
     Dates: start: 20091119
  4. ESOMEPRAZOLE [Concomitant]
     Dosage: DATE OF LAST DOSE: 19 OCT 2010
     Route: 048
     Dates: start: 20091119
  5. DEXAMETHASONE [Concomitant]
     Indication: OEDEMA
     Dosage: DATE OF LAST DOSE: 19 OCT 2010
     Route: 048
     Dates: start: 20100902
  6. MOVICOLON [Concomitant]
     Indication: CONSTIPATION
     Dosage: DAILY DOSE: 1 SACHET
     Route: 048
     Dates: start: 20100909
  7. LORAZEPAM [Concomitant]
     Indication: ANXIETY
     Dosage: AS NECESSARY, DATE OF LAST DOSE: 19 OCT 2010
     Route: 048
     Dates: start: 20100901
  8. LORAZEPAM [Concomitant]
     Dosage: INDICATION: INSOMNIA, DATE OF LAST DOSE: 18 OCT 2010
     Route: 048
     Dates: start: 20100922
  9. COTRIMAZOL [Concomitant]
  10. AMOXICILLIN AND CLAVULANATE POTASSIUM [Concomitant]

REACTIONS (2)
  - LUNG INFECTION [None]
  - RESPIRATORY FAILURE [None]
